FAERS Safety Report 5103147-X (Version None)
Quarter: 2006Q3

REPORT INFORMATION
  Report Type: 
  Country: None (occurrence: None)
  Receive Date: 20060908
  Receipt Date: 20060829
  Transmission Date: 20061208
  Serious: Yes (Death, Other)
  Sender: FDA-Public Use
  Company Number: 062-20785-06090024

PATIENT
  Age: 42 Year
  Sex: Male

DRUGS (1)
  1. THALIDOMIDE (THALIDOMIDE) (CAPSULE) [Suspect]
     Indication: GERM CELL CANCER
     Dosage: 200 MG, DAILY, ORAL
     Route: 048

REACTIONS (1)
  - SUDDEN DEATH [None]
